FAERS Safety Report 6987524-8 (Version None)
Quarter: 2010Q3

REPORT INFORMATION
  Report Type: 
  Country: None (occurrence: None)
  Receive Date: 20100916
  Receipt Date: 20100908
  Transmission Date: 20110219
  Serious: No
  Sender: FDA-Public Use
  Company Number: US-PFIZER INC-2010114921

PATIENT
  Sex: Female
  Weight: 75 kg

DRUGS (8)
  1. LYRICA [Suspect]
     Indication: HERPES ZOSTER
     Dosage: 75 MG, 1X/DAY
     Route: 048
     Dates: start: 20100903, end: 20100904
  2. SYNTHROID [Concomitant]
     Indication: THYROID DISORDER
     Dosage: UNK
  3. METFORMIN [Concomitant]
     Indication: DIABETES MELLITUS
     Dosage: UNK
  4. MIRALAX [Concomitant]
     Indication: RESTLESS LEGS SYNDROME
     Dosage: UNK
  5. VITAMIN B-12 [Concomitant]
     Dosage: UNK
  6. VYTORIN [Concomitant]
     Dosage: UNK
  7. AVAPRO [Concomitant]
     Dosage: UNK
  8. ALLEGRA [Concomitant]
     Dosage: UNK

REACTIONS (3)
  - FATIGUE [None]
  - INSOMNIA [None]
  - NERVOUSNESS [None]
